FAERS Safety Report 15704261 (Version 1)
Quarter: 2018Q4

REPORT INFORMATION
  Report Type: Spontaneous
  Country: US (occurrence: US)
  Receive Date: 20181127
  Receipt Date: 20181127
  Transmission Date: 20190205
  Serious: Yes (Life-Threatening, Other)
  Sender: FDA-Public Use
  Company Number: None

PATIENT
  Age: 35 Year
  Sex: Female
  Weight: 81 kg

DRUGS (1)
  1. CHANTIX [Suspect]
     Active Substance: VARENICLINE TARTRATE
     Indication: SMOKING CESSATION THERAPY
     Dosage: ?          OTHER STRENGTH:N/A;QUANTITY:1 DF DOSAGE FORM;?
     Route: 048

REACTIONS (4)
  - Depression [None]
  - Suicidal ideation [None]
  - Anxiety [None]
  - Loss of employment [None]

NARRATIVE: CASE EVENT DATE: 20180501
